FAERS Safety Report 6903905-2 (Version None)
Quarter: 2010Q3

REPORT INFORMATION
  Report Type: 
  Country: None (occurrence: None)
  Receive Date: 20100804
  Receipt Date: 20090125
  Transmission Date: 20110219
  Serious: No
  Sender: FDA-Public Use
  Company Number: US-PFIZER INC-2009160772

PATIENT
  Sex: Female
  Weight: 68 kg

DRUGS (6)
  1. LYRICA [Suspect]
     Indication: NERVE INJURY
     Dosage: UNK
     Dates: start: 20080101
  2. CORTICOSTEROID NOS [Suspect]
     Route: 008
  3. THYROID TAB [Concomitant]
  4. PROZAC [Concomitant]
  5. WELLBUTRIN [Concomitant]
  6. VITAMIN TAB [Concomitant]

REACTIONS (3)
  - INCREASED APPETITE [None]
  - PAIN [None]
  - WEIGHT INCREASED [None]
